FAERS Safety Report 7478146-3 (Version None)
Quarter: 2011Q2

REPORT INFORMATION
  Report Type: 
  Country: None (occurrence: None)
  Receive Date: 20110513
  Receipt Date: 20110429
  Transmission Date: 20111010
  Serious: Yes (Other)
  Sender: FDA-Public Use
  Company Number: CA-JNJFOC-20110501377

PATIENT
  Sex: Female
  Weight: 56.1 kg

DRUGS (11)
  1. REMICADE [Suspect]
     Indication: COLITIS ULCERATIVE
     Route: 042
  2. DILTIAZEM [Concomitant]
  3. METFORMIN HCL [Concomitant]
  4. RABEPRAZOLE SODIUM [Concomitant]
  5. IMURAN [Concomitant]
  6. RAMIPRIL [Concomitant]
  7. OXYBUTYNIN [Concomitant]
  8. REMICADE [Suspect]
     Indication: CROHN'S DISEASE
     Route: 042
  9. NEXIUM [Concomitant]
  10. HYDROCHLOROTHIAZIDE [Concomitant]
  11. NITROGLYCERIN [Concomitant]

REACTIONS (5)
  - FATIGUE [None]
  - VOMITING [None]
  - DIARRHOEA [None]
  - ABDOMINAL PAIN [None]
  - NAUSEA [None]
